FAERS Safety Report 14466663 (Version 1)
Quarter: 2018Q1

REPORT INFORMATION
  Report Type: Spontaneous
  Country: US (occurrence: US)
  Receive Date: 20180130
  Receipt Date: 20180130
  Transmission Date: 20180509
  Serious: Yes (Hospitalization)
  Sender: FDA-Public Use
  Company Number: None

PATIENT
  Age: 43 Year
  Sex: Female

DRUGS (2)
  1. HUMIRA [Suspect]
     Active Substance: ADALIMUMAB
     Indication: CROHN^S DISEASE
     Route: 058
     Dates: start: 2017
  2. SCOPOLAMINE [Concomitant]
     Active Substance: SCOPOLAMINE

REACTIONS (2)
  - Condition aggravated [None]
  - Unevaluable event [None]

NARRATIVE: CASE EVENT DATE: 20180125
